FAERS Safety Report 6363874-3 (Version None)
Quarter: 2009Q3

REPORT INFORMATION
  Report Type: 
  Country: None (occurrence: None)
  Receive Date: 20090919
  Receipt Date: 20090707
  Transmission Date: 20100115
  Serious: No
  Sender: FDA-Public Use
  Company Number: US-ABBOTT-09P-163-0584330-00

PATIENT
  Sex: Female
  Weight: 54.026 kg

DRUGS (7)
  1. HUMIRA [Suspect]
     Indication: CROHN'S DISEASE
     Route: 058
     Dates: start: 20080101
  2. PENTASA [Concomitant]
     Indication: DRUG USE FOR UNKNOWN INDICATION
  3. LOVENOX [Concomitant]
     Indication: DRUG USE FOR UNKNOWN INDICATION
  4. PRILOSEC [Concomitant]
     Indication: DRUG USE FOR UNKNOWN INDICATION
  5. REQUIP [Concomitant]
     Indication: DRUG USE FOR UNKNOWN INDICATION
  6. ACTIVELLA [Concomitant]
     Indication: DRUG USE FOR UNKNOWN INDICATION
  7. SANDOSTATIN [Concomitant]
     Indication: DRUG USE FOR UNKNOWN INDICATION
     Route: 050

REACTIONS (1)
  - DRUG DOSE OMISSION [None]
